FAERS Safety Report 23275177 (Version 1)
Quarter: 2023Q4

REPORT INFORMATION
  Report Type: Other
  Country: IN (occurrence: None)
  Receive Date: 20231208
  Receipt Date: 20231208
  Transmission Date: 20240110
  Serious: Yes (Other)
  Sender: FDA-Public Use
  Company Number: IN-ROCHE-3471021

PATIENT

DRUGS (3)
  1. BEVACIZUMAB [Suspect]
     Active Substance: BEVACIZUMAB
     Indication: Ovarian cancer
     Route: 042
  2. OLAPARIB [Suspect]
     Active Substance: OLAPARIB
     Indication: Ovarian cancer
     Route: 048
  3. RUCAPARIB [Suspect]
     Active Substance: RUCAPARIB
     Indication: Ovarian cancer
     Route: 048

REACTIONS (5)
  - Anaemia [Unknown]
  - Thrombocytopenia [Unknown]
  - Fatigue [Unknown]
  - Diarrhoea [Unknown]
  - Hypertransaminasaemia [Unknown]
